FAERS Safety Report 10688188 (Version 1)
Quarter: 2014Q4

REPORT INFORMATION
  Report Type: Spontaneous
  Country: FR (occurrence: None)
  Receive Date: 20141231
  Receipt Date: 20141231
  Transmission Date: 20150529
  Serious: Yes (Other)
  Sender: FDA-Public Use
  Company Number: NGX_02700_2014

PATIENT
  Sex: Male

DRUGS (2)
  1. QUTENZA [Suspect]
     Active Substance: CAPSAICIN
     Indication: COMPLEX REGIONAL PAIN SYNDROME
     Dosage: (1 DF, (CUTANEOUS PATCH) TRANSDERMAL)?
     Route: 062
     Dates: start: 20141024, end: 20141024
  2. VERSATIS [Concomitant]
     Active Substance: LIDOCAINE

REACTIONS (6)
  - Complex regional pain syndrome [None]
  - Inflammation [None]
  - Application site erythema [None]
  - Application site pain [None]
  - Drug ineffective [None]
  - Disease recurrence [None]

NARRATIVE: CASE EVENT DATE: 2014
